FAERS Safety Report 17714488 (Version 1)
Quarter: 2020Q2

REPORT INFORMATION
  Report Type: Spontaneous
  Country: PL (occurrence: PL)
  Receive Date: 20200427
  Receipt Date: 20200427
  Transmission Date: 20200714
  Serious: Yes (Other)
  Sender: FDA-Public Use
  Company Number: PHHY2015PL101924

PATIENT
  Age: 16 Year
  Sex: Female

DRUGS (4)
  1. IMATINIB. [Suspect]
     Active Substance: IMATINIB MESYLATE
     Dosage: 800 MG, QD
     Route: 065
     Dates: end: 20140119
  2. DASATINIB. [Concomitant]
     Active Substance: DASATINIB
     Indication: CHRONIC MYELOID LEUKAEMIA
     Dosage: 100 MG, QD
     Route: 065
     Dates: start: 20140119
  3. IMATINIB. [Suspect]
     Active Substance: IMATINIB MESYLATE
     Indication: CHRONIC MYELOID LEUKAEMIA
     Dosage: 300 MG/M2 OR 500 MG/DAY
     Route: 065
     Dates: start: 20121213
  4. IMATINIB. [Suspect]
     Active Substance: IMATINIB MESYLATE
     Dosage: 900 MG, QD
     Route: 065

REACTIONS (7)
  - Nausea [Unknown]
  - Therapeutic response changed [Unknown]
  - Headache [Unknown]
  - Musculoskeletal pain [Unknown]
  - Somnolence [Unknown]
  - Drug ineffective [Unknown]
  - Drug intolerance [Unknown]
